FAERS Safety Report 21272083 (Version 3)
Quarter: 2022Q4

REPORT INFORMATION
  Report Type: Spontaneous
  Country: US (occurrence: US)
  Receive Date: 20220830
  Receipt Date: 20221130
  Transmission Date: 20230112
  Serious: Yes (Life-Threatening, Disabling)
  Sender: FDA-Public Use
  Company Number: US-AMERICAN REGENT INC-2022000677

PATIENT
  Sex: Female
  Weight: 106.6 kg

DRUGS (6)
  1. INJECTAFER [Suspect]
     Active Substance: FERRIC CARBOXYMALTOSE
     Indication: Iron deficiency anaemia
     Dosage: 750 MILLIGRAM MIXED WITH 250 ML OF 0.9% NACL BAG
     Route: 042
     Dates: start: 20200803, end: 20200803
  2. INJECTAFER [Suspect]
     Active Substance: FERRIC CARBOXYMALTOSE
     Dosage: 750 MILLIGRAM MIXED WITH 250 ML OF 0.9% NACL BAG
     Route: 042
     Dates: start: 20200810, end: 20200810
  3. NAPROXEN [Concomitant]
     Active Substance: NAPROXEN
     Indication: Rheumatoid arthritis
     Dosage: 1 TABLET EVERY 12 HOURS AS NEEDED, TAKE WITH FOOD OR MILK
     Route: 048
     Dates: start: 20200721
  4. VENTOLIN HFA [Concomitant]
     Active Substance: ALBUTEROL SULFATE
     Indication: Restrictive pulmonary disease
     Dosage: INHALE 1 TO 2 PUFFS (108 [90 BASE] MCG/ACT) EVERY 6 HOURS AS NEEDED
     Dates: start: 20200601
  5. VITAMIN C [Concomitant]
     Active Substance: ASCORBIC ACID
     Indication: Product used for unknown indication
     Dosage: TAKE 1 TABLET TWICE DAILY
     Route: 048
     Dates: start: 20170421
  6. ERGOCALCIFEROL [Concomitant]
     Active Substance: ERGOCALCIFEROL
     Indication: Vitamin D deficiency
     Dosage: 1 CAPSULE ORALLY ONCE A WEEK FOR 8 WEEKS
     Route: 048
     Dates: start: 20200714

REACTIONS (9)
  - Hypovitaminosis [Not Recovered/Not Resolved]
  - Pain [Not Recovered/Not Resolved]
  - Hypophosphataemia [Not Recovered/Not Resolved]
  - Dizziness [Not Recovered/Not Resolved]
  - Dyspnoea [Not Recovered/Not Resolved]
  - Anhedonia [Not Recovered/Not Resolved]
  - Emotional distress [Not Recovered/Not Resolved]
  - Anxiety [Not Recovered/Not Resolved]
  - Product quality issue [Unknown]
